FAERS Safety Report 13358894 (Version 1)
Quarter: 2017Q1

REPORT INFORMATION
  Report Type: Spontaneous
  Country: US (occurrence: US)
  Receive Date: 20170322
  Receipt Date: 20170322
  Transmission Date: 20170429
  Serious: No
  Sender: FDA-Public Use
  Company Number: US-PFIZER INC-HOS1702136

PATIENT
  Sex: Male

DRUGS (2)
  1. PIPERACILLIN/TAZOBACTAM [Suspect]
     Active Substance: PIPERACILLIN SODIUM\TAZOBACTAM SODIUM
     Indication: LIVER ABSCESS
     Dosage: 20.25 G, 750MG/HR FOR A DURATION OF 24 HOURS,UNKNOWN
     Route: 041
  2. PARENTERAL (CALCIUM CHLORIDE\POTASSIUM CHLORIDE\SODIUM ACETATE\SODIUM CHLORIDE) [Suspect]
     Active Substance: CALCIUM CHLORIDE\POTASSIUM CHLORIDE\SODIUM ACETATE\SODIUM CHLORIDE
     Indication: PRODUCT USED FOR UNKNOWN INDICATION
     Dosage: 530 ML, 20 ML/HR FOR ADURATION OF 24HOURS, UNKNOWN
     Route: 041

REACTIONS (5)
  - Device occlusion [None]
  - No adverse event [Unknown]
  - Poor quality drug administered [Recovered/Resolved]
  - Drug dose omission [Recovered/Resolved]
  - Product deposit [Recovered/Resolved]
